FAERS Safety Report 13021938 (Version 6)
Quarter: 2022Q2

REPORT INFORMATION
  Report Type: Spontaneous
  Country: FR (occurrence: FR)
  Receive Date: 20161213
  Receipt Date: 20220506
  Transmission Date: 20220721
  Serious: Yes (Death, Life-Threatening, Hospitalization, Other)
  Sender: FDA-Public Use
  Company Number: FR-AUROBINDO-AUR-APL-2016-15207

PATIENT
  Age: 34 Year
  Sex: Male

DRUGS (22)
  1. RISPERIDONE [Suspect]
     Active Substance: RISPERIDONE
     Indication: Bipolar disorder
     Dosage: UNK
     Route: 065
  2. TRAMADOL [Suspect]
     Active Substance: TRAMADOL
     Indication: Abdominal pain
     Dosage: 100 MILLIGRAM
     Route: 065
     Dates: start: 20120625
  3. VALPROIC ACID [Suspect]
     Active Substance: VALPROIC ACID
     Indication: Bipolar disorder
     Dosage: 1000 MILLIGRAM, ONCE A DAY
     Route: 065
     Dates: start: 20120614
  4. VALPROIC ACID [Suspect]
     Active Substance: VALPROIC ACID
     Dosage: UNK
     Route: 065
     Dates: start: 20120625
  5. QUETIAPINE FUMARATE [Suspect]
     Active Substance: QUETIAPINE FUMARATE
     Indication: Bipolar disorder
     Dosage: 600 MILLIGRAM, ONCE A DAY
     Route: 048
     Dates: start: 20120605
  6. QUETIAPINE FUMARATE [Suspect]
     Active Substance: QUETIAPINE FUMARATE
     Indication: Agitation
  7. QUETIAPINE FUMARATE [Suspect]
     Active Substance: QUETIAPINE FUMARATE
     Indication: Aggression
  8. QUETIAPINE FUMARATE [Suspect]
     Active Substance: QUETIAPINE FUMARATE
     Indication: Extrapyramidal disorder
  9. VALIUM [Suspect]
     Active Substance: DIAZEPAM
     Indication: Bipolar disorder
     Dosage: 30 MILLIGRAM, ONCE A DAY
     Route: 048
     Dates: start: 201206, end: 20120625
  10. LOXAPINE [Suspect]
     Active Substance: LOXAPINE
     Indication: Bipolar disorder
     Dosage: 275 MILLIGRAM, ONCE A DAY(275+100 MG ; AS REQUIRED)
     Route: 048
     Dates: start: 20120614
  11. LOXAPINE [Suspect]
     Active Substance: LOXAPINE
     Indication: Extrapyramidal disorder
     Dosage: 375 MILLIGRAM, ONCE A DAY(275+100 MG ; AS REQUIRED )
     Route: 048
     Dates: start: 20120614
  12. LOXAPINE [Suspect]
     Active Substance: LOXAPINE
     Dosage: 100 MILLIGRAM
     Route: 048
     Dates: start: 20210625
  13. LOXAPINE [Suspect]
     Active Substance: LOXAPINE
     Dosage: 100 MILLIGRAM, TWO TIMES A DAY
     Route: 048
     Dates: start: 20120614, end: 20120625
  14. LOXAPINE [Suspect]
     Active Substance: LOXAPINE
     Indication: Bipolar disorder
     Dosage: 100 MILLIGRAM
     Route: 030
     Dates: start: 20120625
  15. MORPHINE [Suspect]
     Active Substance: MORPHINE
     Indication: Abdominal pain
     Dosage: UNK
     Route: 042
     Dates: start: 20120625
  16. MORPHINE [Suspect]
     Active Substance: MORPHINE
     Indication: Pain
  17. TROPATEPINE HYDROCHLORIDE [Suspect]
     Active Substance: TROPATEPINE HYDROCHLORIDE
     Indication: Bipolar disorder
     Dosage: 10 MILLIGRAM, ONCE A DAY
     Route: 065
     Dates: start: 20120605
  18. TROPATEPINE HYDROCHLORIDE [Suspect]
     Active Substance: TROPATEPINE HYDROCHLORIDE
     Indication: Agitation
     Dosage: 1 DOSAGE FORM, ONCE A DAY
     Route: 048
     Dates: start: 20120605, end: 20120625
  19. TROPATEPINE HYDROCHLORIDE [Suspect]
     Active Substance: TROPATEPINE HYDROCHLORIDE
     Indication: Extrapyramidal disorder
  20. TROPATEPINE HYDROCHLORIDE [Suspect]
     Active Substance: TROPATEPINE HYDROCHLORIDE
     Indication: Aggression
  21. VALPROATE SODIUM [Suspect]
     Active Substance: VALPROATE SODIUM
     Indication: Bipolar disorder
     Dosage: 500 MILLIGRAM, TWO TIMES A DAY
     Route: 048
     Dates: start: 201206, end: 20120625
  22. ACETAMINOPHEN [Concomitant]
     Active Substance: ACETAMINOPHEN
     Indication: Product used for unknown indication
     Dosage: UNK
     Route: 065
     Dates: start: 20210625

REACTIONS (40)
  - Pneumonia pseudomonal [Fatal]
  - Staphylococcal bacteraemia [Fatal]
  - Candida infection [Fatal]
  - Gastric haemorrhage [Fatal]
  - Septic shock [Fatal]
  - Subileus [Fatal]
  - Large intestine perforation [Fatal]
  - Intestinal ischaemia [Fatal]
  - Cardiac arrest [Fatal]
  - Multiple organ dysfunction syndrome [Fatal]
  - Necrotising colitis [Fatal]
  - Sepsis [Fatal]
  - Metabolic acidosis [Fatal]
  - Haemorrhage [Fatal]
  - Renal failure [Fatal]
  - Fungal infection [Fatal]
  - Mesenteric vascular occlusion [Fatal]
  - Intestinal obstruction [Fatal]
  - Bacterial infection [Fatal]
  - Hepatic cytolysis [Fatal]
  - Condition aggravated [Fatal]
  - Malaise [Fatal]
  - Peripheral coldness [Fatal]
  - Hyperhidrosis [Fatal]
  - Blood pressure systolic increased [Fatal]
  - Hepatic enzyme increased [Fatal]
  - Tachycardia [Fatal]
  - Livedo reticularis [Fatal]
  - Acute kidney injury [Fatal]
  - Stoma site ischaemia [Fatal]
  - Gastrointestinal stoma necrosis [Fatal]
  - Systemic mycosis [Fatal]
  - Gastrointestinal disorder [Fatal]
  - Abdominal pain [Fatal]
  - Vomiting [Fatal]
  - Systemic bacterial infection [Fatal]
  - Constipation [Fatal]
  - Hypothermia [Fatal]
  - Lung disorder [Fatal]
  - Gastrointestinal necrosis [Fatal]

NARRATIVE: CASE EVENT DATE: 20120623
